FAERS Safety Report 5131420-8 (Version None)
Quarter: 2006Q4

REPORT INFORMATION
  Report Type: 
  Country: None (occurrence: None)
  Receive Date: 20061016
  Receipt Date: 20061005
  Transmission Date: 20070319
  Serious: Yes (Hospitalization, Disabling, Other)
  Sender: FDA-Public Use
  Company Number: 2006BH013849

PATIENT
  Sex: Female

DRUGS (2)
  1. PROMETHAZINE [Suspect]
     Indication: DRUG USE FOR UNKNOWN INDICATION
     Dosage: IV
     Route: 042
     Dates: start: 20050904, end: 20050904
  2. MORPHINE SULFATE [Concomitant]

REACTIONS (8)
  - ANHEDONIA [None]
  - EMOTIONAL DISTRESS [None]
  - FINGER AMPUTATION [None]
  - PAIN [None]
  - PARAESTHESIA [None]
  - RASH [None]
  - SKIN DISCOLOURATION [None]
  - SWELLING [None]
